FAERS Safety Report 9176999 (Version 6)
Quarter: 2013Q2

REPORT INFORMATION
  Report Type: Spontaneous
  Country: US (occurrence: US)
  Receive Date: 20120531
  Receipt Date: 20121130
  Transmission Date: 20140414
  Serious: Yes (Hospitalization, Other)
  Sender: FDA-Public Use
  Company Number: US201110004506

PATIENT
  Sex: Female
  Weight: 97.5 kg

DRUGS (26)
  1. BYETTA (EXENATIDE) PEN,DISPOSABLE [Suspect]
     Indication: TYPE 2 DIABETES MELLITUS
     Dosage: INTERRUPED ON 2008, RESTARTED ON 14MAY2009, ORAL BID.
     Route: 058
     Dates: start: 2005, end: 2008
  2. BYETTA PEN DISPOSABLE [Suspect]
     Indication: TYPE 2 DIABETES MELLITUS
     Route: 058
     Dates: start: 20070208
  3. METFORMIN [Concomitant]
  4. CITALOPRAM [Concomitant]
  5. ABILIFY [Concomitant]
  6. INSULIN [Concomitant]
     Dates: start: 200701
  7. AVANDIA [Concomitant]
  8. NORVASC [Concomitant]
     Dosage: TAB,40MG
     Route: 048
  9. METOPROLOL [Concomitant]
  10. CELEXA [Concomitant]
     Dosage: TAB,20MG
     Route: 048
  11. GABAPENTIN [Concomitant]
  12. TOPROL XL [Concomitant]
     Dosage: EXTENDED RELEASE TAB
     Route: 048
  13. LISINOPRIL [Concomitant]
  14. HYDROCHLOROTHIAZIDE [Concomitant]
  15. FISH OIL [Concomitant]
  16. VITAMIN E [Concomitant]
  17. NOVOLIN R [Concomitant]
     Dosage: 1DF:10UNITS
  18. ABILIFY [Concomitant]
     Route: 048
  19. HYDROCODONE [Concomitant]
     Indication: PAIN
     Dosage: 1DF:5/500 UNIT NOS
  20. NEURONTIN [Concomitant]
     Route: 048
  21. CIPRO [Concomitant]
  22. PROTONIX [Concomitant]
     Dosage: TAB
     Route: 048
  23. VITAMIN E [Concomitant]
     Route: 048
  24. LIDODERM PATCH [Concomitant]
     Dosage: 1DF= 1 PATCH?Q12HRS
     Route: 062
  25. LYRICA [Concomitant]
     Dosage: CAP?GEL COATED
     Route: 048
  26. DARVOCET [Concomitant]

REACTIONS (5)
  - Pancreatitis [Unknown]
  - Pancreatitis acute [Recovering/Resolving]
  - Spinal osteoarthritis [Unknown]
  - Cholecystitis chronic [Recovered/Resolved]
  - Off label use [Unknown]
